FAERS Safety Report 21100263 (Version 1)
Quarter: 2022Q3

REPORT INFORMATION
  Report Type: Spontaneous
  Country: FR (occurrence: FR)
  Receive Date: 20220719
  Receipt Date: 20220719
  Transmission Date: 20221027
  Serious: Yes (Other)
  Sender: FDA-Public Use
  Company Number: None

PATIENT
  Age: 38 Year
  Sex: Female
  Weight: 59 kg

DRUGS (9)
  1. DEXAMETHASONE [Suspect]
     Active Substance: DEXAMETHASONE
     Indication: Anaesthesia
     Dosage: ;08:00,  08:01
     Route: 042
     Dates: start: 20210208, end: 20210208
  2. ACETAMINOPHEN [Suspect]
     Active Substance: ACETAMINOPHEN
     Indication: Pain management
     Dosage: 1 TOTAL  STARTED AT 8.30 ENDED AT 8.31
     Route: 048
     Dates: start: 20210208, end: 20210208
  3. MIDAZOLAM [Suspect]
     Active Substance: MIDAZOLAM
     Indication: Anaesthesia
     Dosage: 1 TOTAL STARTED AT ;08:00
     Route: 042
     Dates: start: 20210208, end: 20210208
  4. TRACRIUM [Suspect]
     Active Substance: ATRACURIUM BESYLATE
     Indication: Anaesthesia
     Dosage: AT ;08:00, 1 TOTAL
     Route: 042
     Dates: start: 20210208, end: 20210208
  5. KETOPROFEN [Suspect]
     Active Substance: KETOPROFEN
     Indication: Antiinflammatory therapy
     Dosage: AT ;08:30, 08:31, 1 TOTAL
     Route: 048
     Dates: start: 20210208, end: 20210208
  6. TRAMADOL HYDROCHLORIDE [Suspect]
     Active Substance: TRAMADOL HYDROCHLORIDE
     Indication: Pain management
     Dosage: 1 TOTAL
     Route: 048
     Dates: start: 20210208, end: 20210208
  7. KETAMINE [Suspect]
     Active Substance: KETAMINE
     Indication: Anaesthesia
     Dosage: ;08:00 , 08:01, 1 TOTAL
     Route: 042
     Dates: start: 20210208, end: 20210208
  8. SUFENTA [Suspect]
     Active Substance: SUFENTANIL CITRATE
     Indication: Anaesthesia
     Dosage: ;08:00  , ;08:01, 1 TOTAL
     Route: 042
     Dates: start: 20210208, end: 20210208
  9. DIPRIVAN [Suspect]
     Active Substance: PROPOFOL
     Indication: Anaesthesia
     Dosage: ;08:00, ;08:01
     Route: 042
     Dates: start: 20210208, end: 20210208

REACTIONS (2)
  - Angioedema [Recovered/Resolved]
  - Anaphylactic shock [Recovered/Resolved]

NARRATIVE: CASE EVENT DATE: 20210208
